FAERS Safety Report 16918516 (Version 5)
Quarter: 2020Q3

REPORT INFORMATION
  Report Type: Spontaneous
  Country: US (occurrence: US)
  Receive Date: 20191015
  Receipt Date: 20200724
  Transmission Date: 20201102
  Serious: Yes (Hospitalization, Other)
  Sender: FDA-Public Use
  Company Number: US-PFIZER INC-2019388816

PATIENT
  Sex: Female
  Weight: 54.42 kg

DRUGS (3)
  1. PREMARIN [Suspect]
     Active Substance: ESTROGENS, CONJUGATED
     Indication: BLOOD OESTROGEN DECREASED
     Dosage: UNK, 0.625 1 DAILY
  2. PREMARIN [Suspect]
     Active Substance: ESTROGENS, CONJUGATED
     Dosage: 0.625 MG, ALTERNATE DAY(TAKE 1 TABLET EVERY OTHER DAY)
     Route: 048
  3. PREMARIN [Suspect]
     Active Substance: ESTROGENS, CONJUGATED
     Indication: URETHRAL PROLAPSE
     Dosage: 0.625 MG, 1X/DAY (ONCE A NIGHT)
     Dates: end: 202005

REACTIONS (7)
  - Choking [Unknown]
  - Emotional disorder [Unknown]
  - Off label use [Unknown]
  - Lung disorder [Recovered/Resolved]
  - Hernia [Recovered/Resolved]
  - Dysphagia [Unknown]
  - Gastrooesophageal reflux disease [Recovered/Resolved]

NARRATIVE: CASE EVENT DATE: 201709
